FAERS Safety Report 23402501 (Version 2)
Quarter: 2024Q1

REPORT INFORMATION
  Report Type: Spontaneous
  Country: US (occurrence: US)
  Receive Date: 20240115
  Receipt Date: 20240223
  Transmission Date: 20240410
  Serious: No
  Sender: FDA-Public Use
  Company Number: US-JAZZ PHARMACEUTICALS-2024-US-000685

PATIENT
  Sex: Male

DRUGS (1)
  1. ZEPZELCA [Suspect]
     Active Substance: LURBINECTEDIN
     Indication: Product used for unknown indication
     Dosage: UNK

REACTIONS (1)
  - Disease progression [Unknown]
